FAERS Safety Report 4641217-0 (Version None)
Quarter: 2005Q2

REPORT INFORMATION
  Report Type: 
  Country: None (occurrence: None)
  Receive Date: 20050419
  Receipt Date: 20050331
  Transmission Date: 20051028
  Serious: Yes (Other)
  Sender: FDA-Public Use
  Company Number: B0376357A

PATIENT
  Age: 48 Year
  Sex: Female

DRUGS (3)
  1. FLOLAN [Suspect]
     Dosage: INTRAVENOUS
     Route: 042
  2. BOSENTAN [Concomitant]
  3. SILDENAFIL CITRATE [Concomitant]

REACTIONS (4)
  - HAEMATURIA [None]
  - LEUKOCYTOCLASTIC VASCULITIS [None]
  - PROTEINURIA [None]
  - RENAL DISORDER [None]
